FAERS Safety Report 5070294-0 (Version None)
Quarter: 2006Q3

REPORT INFORMATION
  Report Type: 
  Country: None (occurrence: None)
  Receive Date: 20060802
  Receipt Date: 20060717
  Transmission Date: 20061208
  Serious: Yes (Other)
  Sender: FDA-Public Use
  Company Number: TRP_0813_2006

PATIENT
  Age: 46 Year
  Sex: Male
  Weight: 90.7194 kg

DRUGS (5)
  1. RIBASPHERE [Suspect]
     Indication: HEPATITIS C
     Dosage: 400 MG BID PO
     Route: 048
     Dates: start: 20050901
  2. INFERGEN [Suspect]
     Indication: HEPATITIS C
     Dosage: 9 MCG QDAY SC
     Route: 058
     Dates: start: 20050901
  3. LEXAPRO [Concomitant]
  4. BUPROPION HCL [Concomitant]
  5. B-12 [Concomitant]

REACTIONS (15)
  - ABDOMINAL PAIN UPPER [None]
  - AGITATION [None]
  - ANOREXIA [None]
  - CHEST PAIN [None]
  - DEPRESSION [None]
  - DYSPNOEA [None]
  - FATIGUE [None]
  - FEELING ABNORMAL [None]
  - INCREASED APPETITE [None]
  - INSOMNIA [None]
  - IRRITABILITY [None]
  - LOSS OF EMPLOYMENT [None]
  - NIGHT SWEATS [None]
  - SOMNOLENCE [None]
  - URTICARIA [None]
